FAERS Safety Report 12855799 (Version 2)
Quarter: 2016Q4

REPORT INFORMATION
  Report Type: Report from Study
  Country: BR (occurrence: BR)
  Receive Date: 20161018
  Receipt Date: 20161030
  Transmission Date: 20170207
  Serious: Yes (Death, Hospitalization, Other)
  Sender: FDA-Public Use
  Company Number: PHHY2016BR118059

PATIENT
  Age: 49 Year
  Sex: Male
  Weight: 92 kg

DRUGS (2)
  1. EXJADE [Suspect]
     Active Substance: DEFERASIROX
     Indication: BONE MARROW FAILURE
     Dosage: 25 MG/KG, QD (2000 MG: 4 DF OF 500 MG)
     Route: 048
  2. EXJADE [Suspect]
     Active Substance: DEFERASIROX
     Indication: ANAEMIA
     Dosage: 2000 MG, QD (4 DISPERSABLE TABLET()
     Route: 048

REACTIONS (10)
  - Pyrexia [Unknown]
  - Haematochezia [Unknown]
  - Malaise [Unknown]
  - Death [Fatal]
  - Platelet count decreased [Unknown]
  - Asthenia [Recovered/Resolved]
  - Haemoglobin decreased [Recovered/Resolved]
  - Oxygen consumption decreased [Unknown]
  - Decreased immune responsiveness [Unknown]
  - Shock haemorrhagic [Unknown]

NARRATIVE: CASE EVENT DATE: 20161005
